FAERS Safety Report 13292362 (Version 1)
Quarter: 2017Q1

REPORT INFORMATION
  Report Type: Spontaneous
  Country: FR (occurrence: FR)
  Receive Date: 20170303
  Receipt Date: 20170303
  Transmission Date: 20170428
  Serious: Yes (Hospitalization)
  Sender: FDA-Public Use
  Company Number: FR-PFIZER INC-2017086970

PATIENT
  Age: 42 Year
  Sex: Female

DRUGS (16)
  1. EMEND [Interacting]
     Active Substance: APREPITANT
     Indication: PREMEDICATION
     Dosage: UNK
     Route: 048
     Dates: start: 20170207, end: 20170209
  2. PLITICAN [Concomitant]
     Active Substance: ALIZAPRIDE HYDROCHLORIDE
     Indication: PREMEDICATION
     Dosage: 200 MG, DAILY
     Dates: start: 20170207, end: 20170210
  3. ACTISKENAN [Concomitant]
     Active Substance: MORPHINE SULFATE
  4. DOLIPRANE [Concomitant]
     Active Substance: ACETAMINOPHEN
     Dosage: 1000 MG, 4X/DAY
  5. OPHTIM [Concomitant]
  6. IFOSFAMIDE EG [Interacting]
     Active Substance: IFOSFAMIDE
     Indication: SARCOMA
     Dosage: 5700 MG, DAILY
     Route: 041
     Dates: start: 20170208
  7. IFOSFAMIDE EG [Interacting]
     Active Substance: IFOSFAMIDE
     Dosage: 5700 MG, DAILY
     Route: 041
     Dates: start: 20170209
  8. SOLU-MEDROL [Suspect]
     Active Substance: METHYLPREDNISOLONE SODIUM SUCCINATE
     Indication: PREMEDICATION
     Dosage: 80 MG, 1X/DAY
     Route: 051
     Dates: start: 20170207, end: 20170210
  9. SKENAN [Concomitant]
     Active Substance: MORPHINE SULFATE
     Dosage: 160 MG, 2X/DAY
  10. CISPLATIN. [Suspect]
     Active Substance: CISPLATIN
     Indication: SARCOMA
     Dosage: 190 MG, SINGLE
     Route: 042
     Dates: start: 20170207
  11. ADRIBLASTINE [Suspect]
     Active Substance: DOXORUBICIN
     Indication: SARCOMA
     Dosage: 115 MG, SINGLE
     Route: 042
     Dates: start: 20170207
  12. UROMITEXAN [Suspect]
     Active Substance: MESNA
     Indication: CHEMOTHERAPY UROTHELIAL TOXICITY ATTENUATION
     Dosage: 6800 MG, DAILY
     Route: 041
     Dates: start: 20170208
  13. UROMITEXAN [Suspect]
     Active Substance: MESNA
     Dosage: 6800 MG, DAILY
     Route: 041
     Dates: start: 20170209
  14. LUTERAN [Concomitant]
     Active Substance: CHLORMADINONE ACETATE
  15. LOVENOX [Concomitant]
     Active Substance: ENOXAPARIN SODIUM
     Dosage: 1 DF, 1X/DAY
  16. ZOPHREN /00955301/ [Suspect]
     Active Substance: ONDANSETRON
     Indication: PREMEDICATION
     Dosage: 8 MG, UNK
     Dates: start: 20170207, end: 20170210

REACTIONS (2)
  - Encephalopathy [Not Recovered/Not Resolved]
  - Drug interaction [Unknown]

NARRATIVE: CASE EVENT DATE: 201702
